FAERS Safety Report 8397459-4 (Version None)
Quarter: 2012Q2

REPORT INFORMATION
  Report Type: 
  Country: None (occurrence: None)
  Receive Date: 20120529
  Receipt Date: 20120529
  Transmission Date: 20120825
  Serious: Yes (Other)
  Sender: FDA-Public Use
  Company Number: None

PATIENT
  Sex: Female
  Weight: 67.1324 kg

DRUGS (1)
  1. LIVALO [Suspect]
     Indication: BLOOD CHOLESTEROL INCREASED
     Dosage: 1MG QOD PO
     Route: 048
     Dates: start: 20120401, end: 20120415

REACTIONS (3)
  - PAIN IN JAW [None]
  - NEUROPATHY PERIPHERAL [None]
  - DRUG HYPERSENSITIVITY [None]
